FAERS Safety Report 6279501-X (Version None)
Quarter: 2009Q3

REPORT INFORMATION
  Report Type: 
  Country: None (occurrence: None)
  Receive Date: 20090721
  Receipt Date: 20090707
  Transmission Date: 20100115
  Serious: Yes (Hospitalization, Other)
  Sender: FDA-Public Use
  Company Number: FABR-11705

PATIENT
  Age: 59 Year
  Sex: Female

DRUGS (11)
  1. FABRAZYME         (AGALISIDASE BETA) POWDER FOR SOLUTION  INFUSION [Suspect]
     Indication: FABRY'S DISEASE
     Dosage: 70 MG, Q2W, INTRAVENOUS
     Route: 042
     Dates: start: 20040614, end: 20040628
  2. CALCIUM CHANNEL BLOCKER [Concomitant]
  3. STATINS [Concomitant]
  4. TRICYCLIC ANTIDEPRESSANT [Concomitant]
  5. IXEL (MILNACIPRAN) [Concomitant]
  6. REVIA [Concomitant]
  7. OXAZEPAM [Concomitant]
  8. MEPRONIZINE (MEPROBAMATE, ACEPROMETAZINE) [Concomitant]
  9. PRAVASTATIN SODIUM [Concomitant]
  10. MEDIATOR (BENFLUOREX HYDROCHLORIDE) [Concomitant]
  11. LERCANIDIPINE [Concomitant]

REACTIONS (7)
  - ANGIOEDEMA [None]
  - DRUG TOLERANCE DECREASED [None]
  - HEADACHE [None]
  - HOT FLUSH [None]
  - NAUSEA [None]
  - RASH [None]
  - SUICIDE ATTEMPT [None]
